FAERS Safety Report 6307394-0 (Version None)
Quarter: 2009Q3

REPORT INFORMATION
  Report Type: 
  Country: None (occurrence: None)
  Receive Date: 20090810
  Receipt Date: 20090730
  Transmission Date: 20100115
  Serious: Yes (Hospitalization)
  Sender: FDA-Public Use
  Company Number: 2008AL007055

PATIENT
  Age: 88 Year
  Sex: Female
  Weight: 74.8435 kg

DRUGS (1)
  1. DIGOXIN [Suspect]
     Dosage: 0.125MG, PO
     Route: 048

REACTIONS (11)
  - BLOOD GLUCOSE INCREASED [None]
  - COMMUNICATION DISORDER [None]
  - CYSTITIS [None]
  - GASTROINTESTINAL PAIN [None]
  - INTESTINAL FUNCTIONAL DISORDER [None]
  - LETHARGY [None]
  - NAUSEA [None]
  - PULMONARY CONGESTION [None]
  - THERAPEUTIC AGENT TOXICITY [None]
  - VISUAL IMPAIRMENT [None]
  - VOMITING [None]
